FAERS Safety Report 25947273 (Version 1)
Quarter: 2025Q4

REPORT INFORMATION
  Report Type: Spontaneous
  Country: AE (occurrence: AE)
  Receive Date: 20251022
  Receipt Date: 20251022
  Transmission Date: 20260117
  Serious: Yes (Hospitalization, Other)
  Sender: INVENTIA HEALTHCARE LTD
  Company Number: AE-IHL-000692

PATIENT
  Age: 30 Year
  Sex: Female

DRUGS (2)
  1. VALPROATE SODIUM [Suspect]
     Active Substance: VALPROATE SODIUM
     Indication: Bipolar disorder
     Route: 065
  2. PALIPERIDONE [Suspect]
     Active Substance: PALIPERIDONE
     Indication: Bipolar disorder
     Route: 065

REACTIONS (4)
  - Gender dysphoria [Recovered/Resolved]
  - Hyperprolactinaemia [Recovered/Resolved]
  - Hirsutism [Unknown]
  - Amenorrhoea [Unknown]
